FAERS Safety Report 5643706-9 (Version None)
Quarter: 2008Q1

REPORT INFORMATION
  Report Type: 
  Country: None (occurrence: None)
  Receive Date: 20080131
  Receipt Date: 20071220
  Transmission Date: 20080703
  Serious: No
  Sender: FDA-Public Use
  Company Number: 163-21880-07121352

PATIENT
  Age: 85 Year
  Sex: Female

DRUGS (1)
  1. REVLIMID [Suspect]
     Indication: MYELODYSPLASTIC SYNDROME
     Dosage: 5 MG, DAILY AT HS X 28 DAYS, ORAL
     Route: 048
     Dates: start: 20071101

REACTIONS (3)
  - JOINT SWELLING [None]
  - RASH [None]
  - WHITE BLOOD CELL COUNT DECREASED [None]
